FAERS Safety Report 5522621-5 (Version None)
Quarter: 2007Q4

REPORT INFORMATION
  Report Type: 
  Country: None (occurrence: None)
  Receive Date: 20071120
  Receipt Date: 20071116
  Transmission Date: 20080405
  Serious: Yes (Hospitalization)
  Sender: FDA-Public Use
  Company Number: FR-SHR-FR-2007-043387

PATIENT
  Age: 49 Year
  Sex: Male

DRUGS (1)
  1. ULTRAVIST 300 [Suspect]
     Indication: COMPUTERISED TOMOGRAM
     Dosage: 100 ML, 1 DOSE
     Route: 042
     Dates: start: 20071115, end: 20071115

REACTIONS (2)
  - ANAPHYLACTIC SHOCK [None]
  - HYPOTENSION [None]
